FAERS Safety Report 5000473-X (Version None)
Quarter: 2006Q2

REPORT INFORMATION
  Report Type: 
  Country: None (occurrence: None)
  Receive Date: 20060512
  Receipt Date: 20060501
  Transmission Date: 20061013
  Serious: Yes (Other)
  Sender: FDA-Public Use
  Company Number: US-JNJFOC-20060500662

PATIENT
  Sex: Female

DRUGS (7)
  1. REMICADE [Suspect]
     Route: 042
  2. REMICADE [Suspect]
     Route: 042
  3. ATENOLOL [Concomitant]
  4. LEXAPRO [Concomitant]
  5. TYLENOL (CAPLET) [Concomitant]
  6. ADVIL [Concomitant]
  7. ASPIRIN [Concomitant]

REACTIONS (8)
  - BACK PAIN [None]
  - CHOKING [None]
  - COUGH [None]
  - HEADACHE [None]
  - INFUSION RELATED REACTION [None]
  - PRURITUS [None]
  - RESPIRATORY DISORDER [None]
  - TUBERCULOSIS [None]
